FAERS Safety Report 15112876 (Version 1)
Quarter: 2018Q3

REPORT INFORMATION
  Report Type: Spontaneous
  Country: US (occurrence: US)
  Receive Date: 20180705
  Receipt Date: 20180705
  Transmission Date: 20181010
  Serious: No
  Sender: FDA-Public Use
  Company Number: US-009507513-1807USA000443

PATIENT
  Sex: Female

DRUGS (1)
  1. IMPLANON [Suspect]
     Active Substance: ETONOGESTREL
     Dosage: AN IMPLANON (STRENGTH:68 (UNIT NOT REPORTED)) IN THE ARM
     Route: 065
     Dates: start: 2008

REACTIONS (2)
  - Incorrect drug administration duration [Unknown]
  - Complication associated with device [Not Recovered/Not Resolved]

NARRATIVE: CASE EVENT DATE: 2011
